FAERS Safety Report 21593366 (Version 1)
Quarter: 2022Q4

REPORT INFORMATION
  Report Type: Spontaneous
  Country: PL (occurrence: PL)
  Receive Date: 20221114
  Receipt Date: 20221114
  Transmission Date: 20230113
  Serious: Yes (Death, Life-Threatening, Hospitalization, Other)
  Sender: FDA-Public Use
  Company Number: PL-Accord-285834

PATIENT
  Sex: Female

DRUGS (1)
  1. METHOTREXATE [Suspect]
     Active Substance: METHOTREXATE
     Indication: Product used for unknown indication

REACTIONS (6)
  - Incorrect dose administered [Fatal]
  - Bone marrow disorder [Fatal]
  - Skin injury [Fatal]
  - Multiple organ dysfunction syndrome [Fatal]
  - Pancytopenia [Fatal]
  - Toxicity to various agents [Fatal]
